APPROVED DRUG PRODUCT: NORVIR
Active Ingredient: RITONAVIR
Strength: 100MG/PACKET
Dosage Form/Route: POWDER;ORAL
Application: N209512 | Product #001
Applicant: ABBVIE INC
Approved: Jun 7, 2017 | RLD: Yes | RS: Yes | Type: RX